FAERS Safety Report 11943171 (Version 1)
Quarter: 2016Q1

REPORT INFORMATION
  Report Type: Spontaneous
  Country: US (occurrence: US)
  Receive Date: 20160125
  Receipt Date: 20160125
  Transmission Date: 20160526
  Serious: No
  Sender: FDA-Public Use
  Company Number: US-UNITED THERAPEUTICS-UNT-2015-009406

PATIENT
  Sex: Female

DRUGS (2)
  1. ORENITRAM [Suspect]
     Active Substance: TREPROSTINIL
     Indication: PULMONARY ARTERIAL HYPERTENSION
     Dosage: 2.875 MG, TID
     Route: 048
     Dates: start: 20150305
  2. ORENITRAM [Suspect]
     Active Substance: TREPROSTINIL
     Indication: PULMONARY HYPERTENSION
     Dosage: 3.625 MG, TID
     Route: 048

REACTIONS (6)
  - Vomiting [Unknown]
  - Flushing [Unknown]
  - Diarrhoea [Recovering/Resolving]
  - Headache [Unknown]
  - Nausea [Unknown]
  - Syncope [Unknown]

NARRATIVE: CASE EVENT DATE: 201507
